FAERS Safety Report 4657548-4 (Version None)
Quarter: 2005Q2

REPORT INFORMATION
  Report Type: 
  Country: None (occurrence: None)
  Receive Date: 20050510
  Receipt Date: 20050428
  Transmission Date: 20051028
  Serious: Yes (Hospitalization)
  Sender: FDA-Public Use
  Company Number: JP-BRISTOL-MYERS SQUIBB COMPANY-12949327

PATIENT
  Age: 70 Year
  Sex: Female

DRUGS (5)
  1. MAXIPIME [Suspect]
     Indication: ANTI-INFECTIVE THERAPY
     Route: 042
     Dates: start: 20050415, end: 20050418
  2. GEMZAR [Suspect]
     Indication: LUNG ADENOCARCINOMA STAGE III
     Route: 042
     Dates: start: 20050418, end: 20050418
  3. KYTRIL [Suspect]
     Indication: PROPHYLAXIS OF NAUSEA AND VOMITING
     Route: 042
     Dates: start: 20050418, end: 20050418
  4. MUCODYNE [Concomitant]
     Route: 048
  5. OPSO [Concomitant]
     Route: 048

REACTIONS (3)
  - DYSPNOEA [None]
  - LUNG DISORDER [None]
  - PULMONARY OEDEMA [None]
